FAERS Safety Report 6063308-2 (Version None)
Quarter: 2009Q1

REPORT INFORMATION
  Report Type: 
  Country: None (occurrence: None)
  Receive Date: 20090203
  Receipt Date: 20090123
  Transmission Date: 20090719
  Serious: Yes (Life-Threatening)
  Sender: FDA-Public Use
  Company Number: JP-SANOFI-SYNTHELABO-A01200900664

PATIENT
  Sex: Male

DRUGS (11)
  1. FLUOROURACIL [Suspect]
     Indication: RECTAL CANCER METASTATIC
     Route: 041
  2. DIPHENHYDRAMINE HCL [Suspect]
     Route: 048
     Dates: start: 20080514, end: 20080611
  3. DECADRON [Suspect]
     Route: 048
     Dates: start: 20080514, end: 20080611
  4. NASEA [Suspect]
     Route: 048
     Dates: start: 20080514, end: 20080611
  5. ZANTAC [Suspect]
     Route: 048
     Dates: start: 20080514, end: 20080611
  6. AVASTIN [Suspect]
     Indication: RECTAL CANCER METASTATIC
     Route: 041
     Dates: start: 20080611, end: 20080611
  7. ELPLAT [Suspect]
     Indication: RECTAL CANCER METASTATIC
     Route: 041
  8. PRIMPERAN TAB [Concomitant]
     Dates: start: 20080514, end: 20080611
  9. KYTRIL [Concomitant]
     Dates: start: 20080514, end: 20080514
  10. DECADRON [Concomitant]
     Dates: start: 20080514, end: 20080514
  11. ISOVORIN [Suspect]
     Indication: RECTAL CANCER METASTATIC
     Route: 041

REACTIONS (1)
  - RECTAL PERFORATION [None]
